FAERS Safety Report 4785265-9 (Version None)
Quarter: 2005Q3

REPORT INFORMATION
  Report Type: 
  Country: None (occurrence: None)
  Receive Date: 20050929
  Receipt Date: 20050916
  Transmission Date: 20060218
  Serious: Yes (Hospitalization, Other)
  Sender: FDA-Public Use
  Company Number: GXKR2005BR01662

PATIENT
  Age: 58 Year
  Sex: Male
  Weight: 84 kg

DRUGS (4)
  1. CAPTOPRIL [Suspect]
     Indication: HYPERTENSION
     Dosage: QD, ORAL
     Route: 048
  2. SOMALGIN (ACETYLSALICYLIC ACID, ALUMINUM GLYCINATE, MAGNESIUM CARBONAT [Concomitant]
  3. MONOCORDIL (ISOSORBIDE MONONITRATE) [Concomitant]
  4. PRAVACHOL [Concomitant]

REACTIONS (3)
  - COUGH [None]
  - INFARCTION [None]
  - VIRAL INFECTION [None]
